FAERS Safety Report 8078599-6 (Version None)
Quarter: 2012Q1

REPORT INFORMATION
  Report Type: 
  Country: None (occurrence: None)
  Receive Date: 20120127
  Receipt Date: 20110103
  Transmission Date: 20120608
  Serious: No
  Sender: FDA-Public Use
  Company Number: US-ABBOTT-11P-163-0695015-00

PATIENT
  Age: 22 Year
  Sex: Female

DRUGS (4)
  1. YASMIN [Concomitant]
     Indication: CONTRACEPTION
  2. PNEUMONIA VACCINE [Concomitant]
     Indication: IMMUNISATION
     Dates: start: 20101226, end: 20101226
  3. HUMIRA [Suspect]
     Indication: CROHN'S DISEASE
     Dates: start: 20100801
  4. ACETAMINOPHEN [Concomitant]
     Indication: PRODUCT USED FOR UNKNOWN INDICATION
     Dosage: OCCASIONALLY

REACTIONS (1)
  - DIARRHOEA [None]
